FAERS Safety Report 8002489-8 (Version None)
Quarter: 2011Q4

REPORT INFORMATION
  Report Type: 
  Country: None (occurrence: None)
  Receive Date: 20111222
  Receipt Date: 20111215
  Transmission Date: 20120403
  Serious: Yes (Hospitalization, Other)
  Sender: FDA-Public Use
  Company Number: HR-JNJFOC-20110602896

PATIENT
  Age: 25 Year
  Sex: Female

DRUGS (14)
  1. RISPERIDONE [Suspect]
     Route: 030
     Dates: start: 20101001, end: 20110801
  2. RISPERIDONE [Suspect]
     Route: 030
     Dates: start: 20070101
  3. RISPERIDONE [Suspect]
     Route: 030
     Dates: start: 20110401, end: 20110901
  4. RISPERIDONE [Suspect]
     Indication: ACUTE PSYCHOSIS
     Route: 030
     Dates: start: 20070101
  5. RISPERIDONE [Suspect]
     Route: 030
     Dates: start: 20101001, end: 20110801
  6. RISPERIDONE [Suspect]
     Route: 030
     Dates: start: 20110401, end: 20110901
  7. RISPERIDONE [Suspect]
     Indication: SCHIZOAFFECTIVE DISORDER
     Route: 030
     Dates: start: 20101001, end: 20110801
  8. RISPERIDONE [Suspect]
     Route: 030
     Dates: start: 20110901
  9. RISPERIDONE [Suspect]
     Route: 030
     Dates: start: 20110901
  10. RISPERIDONE [Suspect]
     Route: 030
     Dates: start: 20070101
  11. DIAZEPAM [Suspect]
     Indication: ACUTE PSYCHOSIS
     Route: 065
     Dates: start: 20070101
  12. RISPERIDONE [Suspect]
     Indication: MENTAL RETARDATION
     Route: 030
     Dates: start: 20110901
  13. RISPERIDONE [Suspect]
     Indication: ACUTE PSYCHOSIS
     Route: 048
     Dates: start: 20070101
  14. RISPERIDONE [Suspect]
     Route: 030
     Dates: start: 20110401, end: 20110901

REACTIONS (9)
  - HYPERPROLACTINAEMIA [None]
  - ACTIVITIES OF DAILY LIVING IMPAIRED [None]
  - MENTAL STATUS CHANGES [None]
  - GALACTORRHOEA [None]
  - DELUSION [None]
  - ABNORMAL BEHAVIOUR [None]
  - SCHIZOPHRENIA [None]
  - ANXIETY [None]
  - TREATMENT NONCOMPLIANCE [None]
